FAERS Safety Report 4868786-X (Version None)
Quarter: 2005Q4

REPORT INFORMATION
  Report Type: 
  Country: None (occurrence: None)
  Receive Date: 20051223
  Receipt Date: 20051213
  Transmission Date: 20060501
  Serious: Yes (Other)
  Sender: FDA-Public Use
  Company Number: 219511

PATIENT
  Age: 62 Year
  Sex: Male

DRUGS (6)
  1. RITUXAN [Suspect]
     Indication: NON-HODGKIN'S LYMPHOMA
  2. CYCLOPHOSPHAMIDE [Concomitant]
  3. VINCRISTINE [Concomitant]
  4. ANTIBIOTICS NOS (ANTIBIOTICS NOS) [Concomitant]
  5. ROCHLORIDE [Concomitant]
  6. PREDNISONE [Concomitant]

REACTIONS (14)
  - ASCITES [None]
  - CD4 LYMPHOCYTES DECREASED [None]
  - CYTOMEGALOVIRUS ENTEROCOLITIS [None]
  - DYSPNOEA [None]
  - GASTROINTESTINAL OEDEMA [None]
  - HYPOVOLAEMIA [None]
  - LYMPHOCYTE PERCENTAGE DECREASED [None]
  - MONOCYTE PERCENTAGE DECREASED [None]
  - NEUTROPHIL PERCENTAGE INCREASED [None]
  - PLEURAL EFFUSION [None]
  - PYREXIA [None]
  - SEPTIC SHOCK [None]
  - WHITE BLOOD CELL COUNT DECREASED [None]
  - WHITE BLOOD CELL COUNT INCREASED [None]
